FAERS Safety Report 21997485 (Version 3)
Quarter: 2023Q1

REPORT INFORMATION
  Report Type: Report from Study
  Country: US (occurrence: US)
  Receive Date: 20230216
  Receipt Date: 20230223
  Transmission Date: 20230417
  Serious: Yes (Hospitalization)
  Sender: FDA-Public Use
  Company Number: US-JNJFOC-20230223787

PATIENT
  Age: 66 Year
  Sex: Male
  Weight: 111.5 kg

DRUGS (2)
  1. DARATUMUMAB [Suspect]
     Active Substance: DARATUMUMAB
     Indication: Plasma cell myeloma
     Dosage: LAST ADMINISTERED DATE 17-JAN-2023
     Route: 058
     Dates: start: 20200917
  2. LENALIDOMIDE [Suspect]
     Active Substance: LENALIDOMIDE
     Indication: Plasma cell myeloma
     Dosage: LAST ADMINISTERED DATE WAS ON 16-JAN-2023
     Route: 048
     Dates: start: 20200917

REACTIONS (2)
  - Febrile neutropenia [Recovered/Resolved with Sequelae]
  - Diarrhoea [Recovered/Resolved with Sequelae]

NARRATIVE: CASE EVENT DATE: 20230208
